FAERS Safety Report 4555910-1 (Version None)
Quarter: 2005Q1

REPORT INFORMATION
  Report Type: 
  Country: None (occurrence: None)
  Receive Date: 20050119
  Receipt Date: 20050112
  Transmission Date: 20050727
  Serious: Yes (Hospitalization)
  Sender: FDA-Public Use
  Company Number: JP-MERCK-0501USA02152

PATIENT
  Age: 10 Year
  Sex: Female

DRUGS (7)
  1. PEPCID [Suspect]
     Route: 042
     Dates: start: 20041222, end: 20041223
  2. PEPCID [Suspect]
     Route: 042
     Dates: start: 20041224, end: 20041224
  3. PEPCID RPD [Suspect]
     Route: 048
     Dates: start: 20041225, end: 20041228
  4. ROCEPHIN [Concomitant]
     Route: 042
     Dates: start: 20041222, end: 20041225
  5. CLARITHROMYCIN [Concomitant]
     Route: 048
     Dates: start: 20041222, end: 20041225
  6. MUCODYNE [Concomitant]
     Route: 048
     Dates: start: 20041222, end: 20041225
  7. AMBROXOL HYDROCHLORIDE [Concomitant]
     Route: 048
     Dates: start: 20041222, end: 20041225

REACTIONS (4)
  - ASTHENIA [None]
  - BLOOD CREATINE PHOSPHOKINASE INCREASED [None]
  - HYPERPYREXIA [None]
  - MYOGLOBIN BLOOD INCREASED [None]
